FAERS Safety Report 7941169-1 (Version None)
Quarter: 2011Q4

REPORT INFORMATION
  Report Type: 
  Country: None (occurrence: None)
  Receive Date: 20111122
  Receipt Date: 20111115
  Transmission Date: 20120403
  Serious: Yes (Death)
  Sender: FDA-Public Use
  Company Number: DKLU1074787

PATIENT
  Age: 18 Year
  Sex: Female

DRUGS (1)
  1. SABRIL [Suspect]
     Indication: COMPLEX PARTIAL SEIZURES
     Dosage: ORAL
     Route: 048
     Dates: start: 20111001

REACTIONS (3)
  - SEPSIS [None]
  - HYPOTENSION [None]
  - POST PROCEDURAL COMPLICATION [None]
